FAERS Safety Report 25462125 (Version 1)
Quarter: 2025Q2

REPORT INFORMATION
  Report Type: Spontaneous
  Country: US (occurrence: None)
  Receive Date: 20250620
  Receipt Date: 20250620
  Transmission Date: 20250716
  Serious: No
  Sender: FDA-CTU
  Company Number: None

PATIENT
  Age: 21 Year
  Sex: Female
  Weight: 62.55 kg

DRUGS (3)
  1. PAIN RELIEF BALM [Suspect]
     Active Substance: MENTHOL
     Indication: Sacroiliac joint dysfunction
     Dosage: OTHER QUANTITY : 2 3-4 DOLLOP OF CREA;?FREQUENCY : 3 TIMES A DAY;?
     Route: 061
  2. ZOLOFT [Concomitant]
     Active Substance: SERTRALINE HYDROCHLORIDE
  3. BUSPIRONE [Concomitant]
     Active Substance: BUSPIRONE HYDROCHLORIDE

REACTIONS (1)
  - Drug ineffective [None]

NARRATIVE: CASE EVENT DATE: 20250620
